FAERS Safety Report 21545799 (Version 1)
Quarter: 2022Q4

REPORT INFORMATION
  Report Type: Report from Study
  Country: TR (occurrence: TR)
  Receive Date: 20221103
  Receipt Date: 20221103
  Transmission Date: 20230113
  Serious: Yes (Death)
  Sender: FDA-Public Use
  Company Number: TR-ABBVIE-4169658

PATIENT
  Age: 89 Year
  Sex: Male
  Weight: 55 kg

DRUGS (8)
  1. CARBIDOPA\LEVODOPA [Suspect]
     Active Substance: CARBIDOPA\LEVODOPA
     Indication: Parkinson^s disease
     Dosage: MORNING DOSE (ML): 10.50 CONTINUOUS DOSE (ML): 3.10 EXTRA DOSE (ML): 1.00
     Route: 050
     Dates: start: 20190416
  2. CARBIDOPA\LEVODOPA [Suspect]
     Active Substance: CARBIDOPA\LEVODOPA
  3. SARS-CoV-2 Vaccine [Concomitant]
     Indication: COVID-19 immunisation
     Dosage: 1 IN ONCE
     Route: 030
  4. SARS-CoV-2 Vaccine [Concomitant]
     Indication: COVID-19 immunisation
     Dosage: 1 IN ONCE
     Route: 030
  5. Rivastigmine (EXELON PATCH) [Concomitant]
     Indication: Parkinson^s disease
     Route: 062
  6. Lamotrigine (LAMICTAL DC) [Concomitant]
     Indication: Epilepsy
     Dosage: 25 MILLIGRAM
     Route: 048
  7. Carbidopa Levodopa (DOPADEX SR) [Concomitant]
     Indication: Parkinson^s disease
     Dosage: 25 MG/100 MG
     Route: 048
     Dates: start: 2016
  8. Domperidone (MOTILIUM) [Concomitant]
     Indication: Parkinson^s disease
     Dosage: 20 MILLIGRAM
     Route: 048

REACTIONS (2)
  - Death [Fatal]
  - Weight decreased [Not Recovered/Not Resolved]

NARRATIVE: CASE EVENT DATE: 20221001
